FAERS Safety Report 15206405 (Version 1)
Quarter: 2018Q3

REPORT INFORMATION
  Report Type: Spontaneous
  Country: US (occurrence: US)
  Receive Date: 20180727
  Receipt Date: 20180727
  Transmission Date: 20181010
  Serious: No
  Sender: FDA-Public Use
  Company Number: US-LUPIN PHARMACEUTICALS INC.-2018-03517

PATIENT
  Sex: Female

DRUGS (1)
  1. BUPROPION HYDROCHLORIDE XL [Suspect]
     Active Substance: BUPROPION HYDROCHLORIDE
     Indication: PRODUCT USED FOR UNKNOWN INDICATION
     Dosage: 300 MG, QD
     Route: 065

REACTIONS (6)
  - Confusional state [Unknown]
  - Dyspnoea [Unknown]
  - Disturbance in attention [Unknown]
  - Hallucination, visual [Unknown]
  - Unevaluable event [Unknown]
  - Dysphagia [Unknown]
